FAERS Safety Report 19002406 (Version 1)
Quarter: 2021Q1

REPORT INFORMATION
  Report Type: Spontaneous
  Country: US (occurrence: US)
  Receive Date: 20210312
  Receipt Date: 20210312
  Transmission Date: 20210420
  Serious: Yes (Other)
  Sender: FDA-Public Use
  Company Number: None

PATIENT
  Age: 54 Year
  Sex: Female
  Weight: 68 kg

DRUGS (1)
  1. CASIRIVIMAB 1200 MG?IMDEVIMAB 1200 MG IN 250 [Suspect]
     Active Substance: CASIRIVIMAB\IMDEVIMAB
     Indication: SARS-COV-2 TEST POSITIVE
     Dosage: ?          OTHER DOSE:1200MG/1200MG/250ML?
     Route: 042
     Dates: start: 20210308, end: 20210308

REACTIONS (5)
  - Urticaria [None]
  - Pruritus [None]
  - Infusion related reaction [None]
  - Dizziness [None]
  - Chest discomfort [None]

NARRATIVE: CASE EVENT DATE: 20210308
